FAERS Safety Report 8842423 (Version 1)
Quarter: 2012Q4

REPORT INFORMATION
  Report Type: Spontaneous
  Country: US (occurrence: None)
  Receive Date: 20121015
  Receipt Date: 20121015
  Transmission Date: 20130627
  Serious: Yes (Hospitalization)
  Sender: FDA-Public Use
  Company Number: None

PATIENT
  Age: 26 Year
  Sex: Female
  Weight: 46.27 kg

DRUGS (2)
  1. GIANVI [Suspect]
     Indication: IRREGULAR PERIODS
  2. GIANVI [Suspect]
     Indication: CONTRACEPTION

REACTIONS (9)
  - Palpitations [None]
  - Panic attack [None]
  - Feeling abnormal [None]
  - Feeling jittery [None]
  - Thinking abnormal [None]
  - Feeling of body temperature change [None]
  - Anxiety [None]
  - Suicidal ideation [None]
  - Violence-related symptom [None]
